FAERS Safety Report 18568582 (Version 1)
Quarter: 2020Q4

REPORT INFORMATION
  Report Type: Spontaneous
  Country: US (occurrence: US)
  Receive Date: 20201201
  Receipt Date: 20201201
  Transmission Date: 20210114
  Serious: Yes (Hospitalization)
  Sender: FDA-Public Use
  Company Number: None

PATIENT
  Age: 78 Year
  Sex: Female
  Weight: 56.7 kg

DRUGS (5)
  1. BAMLANIVIMAB (700 MG / 200 ML NACL 0.9% SOLUTION) [Suspect]
     Active Substance: BAMLANIVIMAB
     Indication: COVID-19
     Dosage: ?          OTHER FREQUENCY:ONCE;?
     Route: 041
     Dates: start: 20201123, end: 20201123
  2. FAMOTIDINE INJECTION 20 MG [Concomitant]
     Dates: start: 20201123, end: 20201123
  3. DIPHENHYDRAMINE INJECTION 50 MG [Concomitant]
     Dates: start: 20201123, end: 20201123
  4. METHYLPREDNISOLONE SODIUM SUCC INJECTION 125 MG [Concomitant]
     Dates: start: 20201123, end: 20201123
  5. ALBUTEROL INHALER 2-4 PUFF [Concomitant]
     Dates: start: 20201123, end: 20201123

REACTIONS (4)
  - Cyanosis [None]
  - Chest pain [None]
  - Dyspnoea [None]
  - Chest discomfort [None]

NARRATIVE: CASE EVENT DATE: 20201123
